FAERS Safety Report 7272366-9 (Version None)
Quarter: 2011Q1

REPORT INFORMATION
  Report Type: 
  Country: None (occurrence: None)
  Receive Date: 20110203
  Receipt Date: 20101018
  Transmission Date: 20110831
  Serious: No
  Sender: FDA-Public Use
  Company Number: US-BAYER-201023122BCC

PATIENT
  Sex: Female
  Weight: 62.585 kg

DRUGS (4)
  1. IBUPROFEN [Concomitant]
  2. ACETAMINOPHEN [Concomitant]
  3. UNCODEABLE ^UNKNOWN MANUFACTURER^ [Concomitant]
  4. ALEVE [Suspect]
     Indication: PAIN
     Dosage: 440 MG, UNK
     Route: 048

REACTIONS (1)
  - PAIN [None]
